FAERS Safety Report 15246327 (Version 1)
Quarter: 2018Q3

REPORT INFORMATION
  Report Type: Spontaneous
  Country: US (occurrence: US)
  Receive Date: 20180713
  Receipt Date: 20180713
  Transmission Date: 20181010
  Serious: No
  Sender: FDA-Public Use
  Company Number: None

PATIENT

DRUGS (2)
  1. SIMBRINZA [Suspect]
     Active Substance: BRIMONIDINE TARTRATE\BRINZOLAMIDE
  2. TIMOLOL. [Suspect]
     Active Substance: TIMOLOL

REACTIONS (4)
  - Drug ineffective [None]
  - Pruritus [None]
  - Erythema [None]
  - Treatment failure [None]
